FAERS Safety Report 4901551-3 (Version None)
Quarter: 2006Q1

REPORT INFORMATION
  Report Type: 
  Country: None (occurrence: None)
  Receive Date: 20060206
  Receipt Date: 20050203
  Transmission Date: 20060701
  Serious: No
  Sender: FDA-Public Use
  Company Number: US-BRISTOL-MYERS SQUIBB COMPANY-12848396

PATIENT
  Sex: Female

DRUGS (2)
  1. TAXOL [Suspect]
  2. CARBOPLATIN [Suspect]

REACTIONS (1)
  - ARTHRALGIA [None]
